FAERS Safety Report 8938566 (Version 1)
Quarter: 2012Q4

REPORT INFORMATION
  Report Type: Spontaneous
  Country: US (occurrence: None)
  Receive Date: 20121129
  Receipt Date: 20121129
  Transmission Date: 20130627
  Serious: Yes (Hospitalization)
  Sender: FDA-Public Use
  Company Number: None

PATIENT
  Age: 25 Year
  Weight: 61.24 kg

DRUGS (1)
  1. MIRENA IUD 000 000 [Suspect]
     Dates: start: 2003, end: 2005

REACTIONS (3)
  - Device dislocation [None]
  - Pelvic inflammatory disease [None]
  - Ovarian cyst [None]
